FAERS Safety Report 14952834 (Version 1)
Quarter: 2018Q2

REPORT INFORMATION
  Report Type: Spontaneous
  Country: US (occurrence: US)
  Receive Date: 20180530
  Receipt Date: 20180530
  Transmission Date: 20180711
  Serious: No
  Sender: FDA-Public Use
  Company Number: US-009507513-1805USA001925

PATIENT
  Age: 33 Year
  Sex: Male

DRUGS (1)
  1. PREGNYL [Suspect]
     Active Substance: CHORIOGONADOTROPIN ALFA
     Indication: INFERTILITY MALE
     Dosage: 1000 UNITS TWICE A WEEK; IN SHOULDER USING A 1.5 INCH NEEDLE
     Route: 030
     Dates: start: 201711

REACTIONS (5)
  - Injection site pain [Recovered/Resolved]
  - Product solubility abnormal [Unknown]
  - Pregnancy test negative [Unknown]
  - Injection site pain [Recovered/Resolved]
  - Drug dose omission [Unknown]

NARRATIVE: CASE EVENT DATE: 20180412
